FAERS Safety Report 5994765-5 (Version None)
Quarter: 2008Q4

REPORT INFORMATION
  Report Type: 
  Country: None (occurrence: None)
  Receive Date: 20081212
  Receipt Date: 20080915
  Transmission Date: 20090506
  Serious: Yes (Hospitalization)
  Sender: FDA-Public Use
  Company Number: US-ABBOTT-08P-163-0476149-00

PATIENT
  Sex: Female
  Weight: 96.36 kg

DRUGS (11)
  1. HUMIRA [Suspect]
     Indication: PSORIATIC ARTHROPATHY
     Dosage: DAY 1
     Dates: start: 20080521, end: 20080521
  2. HUMIRA [Suspect]
     Indication: PSORIASIS
     Dosage: DAY 8
     Dates: start: 20080529, end: 20080529
  3. HUMIRA [Suspect]
  4. METHOTREXATE [Concomitant]
     Indication: PSORIASIS
     Dosage: FOUR PILLS IN ONE WEEK
     Route: 048
     Dates: start: 20030101, end: 20080501
  5. METHOTREXATE [Concomitant]
     Indication: ARTHROPATHY
     Dosage: TWO PILLS IN ONE WEEK
     Route: 048
     Dates: start: 20080729
  6. INSULIN [Concomitant]
     Indication: DIABETES MELLITUS
     Route: 058
  7. AJMALINE [Concomitant]
     Indication: HYPERTENSION
     Route: 048
  8. ATORVASTATIN CALCIUM [Concomitant]
     Indication: BLOOD CHOLESTEROL INCREASED
     Route: 048
  9. LEVOTHYROXINE SODIUM [Concomitant]
     Indication: HYPOTHYROIDISM
     Route: 048
  10. HOME OXYGEN [Concomitant]
     Indication: EMPHYSEMA
     Dosage: AS NEEDED
     Route: 055
  11. RESPIRATORY TREATMENTS [Concomitant]
     Indication: EMPHYSEMA
     Dosage: AS NEEDED
     Route: 055

REACTIONS (2)
  - DYSPNOEA [None]
  - PSORIASIS [None]
